FAERS Safety Report 18581249 (Version 1)
Quarter: 2020Q4

REPORT INFORMATION
  Report Type: Spontaneous
  Country: US (occurrence: US)
  Receive Date: 20201204
  Receipt Date: 20201204
  Transmission Date: 20210114
  Serious: No
  Sender: FDA-Public Use
  Company Number: US-PERRIGO-20US011879

PATIENT
  Age: 90 Year
  Sex: Female

DRUGS (1)
  1. DICLOFENAC SODIUM. [Suspect]
     Active Substance: DICLOFENAC SODIUM
     Indication: MUSCULOSKELETAL PAIN
     Dosage: 2 G, TID
     Route: 061
     Dates: start: 20200812, end: 20200817

REACTIONS (4)
  - Musculoskeletal stiffness [Not Recovered/Not Resolved]
  - Product administered at inappropriate site [Recovered/Resolved]
  - Condition aggravated [Not Recovered/Not Resolved]
  - Off label use [Recovered/Resolved]

NARRATIVE: CASE EVENT DATE: 202008
